FAERS Safety Report 6355286-3 (Version None)
Quarter: 2009Q3

REPORT INFORMATION
  Report Type: 
  Country: None (occurrence: None)
  Receive Date: 20090914
  Receipt Date: 20090902
  Transmission Date: 20100115
  Serious: Yes (Death)
  Sender: FDA-Public Use
  Company Number: FR-PFIZER INC-2009211398

PATIENT
  Age: 45 Year

DRUGS (4)
  1. SUTENT [Suspect]
     Indication: THYROID CANCER
     Dosage: 37.5 MG, CYCLIC
     Dates: start: 20071005, end: 20090418
  2. LEVOTHYROXINE SODIUM [Concomitant]
     Dosage: 200
  3. SECTRAL [Concomitant]
     Dosage: 500
  4. IPERTEN [Concomitant]
     Dosage: 10

REACTIONS (1)
  - HAEMORRHAGE [None]
